FAERS Safety Report 20877757 (Version 2)
Quarter: 2022Q2

REPORT INFORMATION
  Report Type: Other
  Country: CA (occurrence: CA)
  Receive Date: 20220526
  Receipt Date: 20220607
  Transmission Date: 20220720
  Serious: Yes (Hospitalization, Other)
  Sender: FDA-Public Use
  Company Number: CA-002147023-NVSC2022CA101532

PATIENT
  Age: 36 Year
  Sex: Male

DRUGS (3)
  1. XOLAIR [Suspect]
     Active Substance: OMALIZUMAB
     Indication: Chronic spontaneous urticaria
     Dosage: 300 MG, EVERY 4 WEEKS
     Route: 058
     Dates: start: 20220428
  2. BILASTINE [Concomitant]
     Active Substance: BILASTINE
     Indication: Product used for unknown indication
     Dosage: 1 DOSAGE FORM, QID
     Route: 048
     Dates: start: 202107
  3. CETIRIZINE HYDROCHLORIDE [Concomitant]
     Active Substance: CETIRIZINE HYDROCHLORIDE
     Indication: Product used for unknown indication
     Dosage: 1 DOSAGE FORM, BID
     Route: 048
     Dates: start: 202102

REACTIONS (7)
  - Swelling face [Recovered/Resolved]
  - Vision blurred [Recovered/Resolved]
  - Urticaria [Unknown]
  - Anaphylactic reaction [Unknown]
  - Blood pressure abnormal [Unknown]
  - Scratch [Unknown]
  - Skin test positive [Unknown]

NARRATIVE: CASE EVENT DATE: 20220428
